FAERS Safety Report 22707144 (Version 6)
Quarter: 2024Q3

REPORT INFORMATION
  Report Type: Spontaneous
  Country: US (occurrence: US)
  Receive Date: 20230714
  Receipt Date: 20240912
  Transmission Date: 20241017
  Serious: No
  Sender: AMGEN
  Company Number: US-AMGEN-USASP2023121221

PATIENT
  Age: 55 Year
  Sex: Female

DRUGS (15)
  1. OTEZLA [Suspect]
     Active Substance: APREMILAST
     Indication: Psoriatic arthropathy
     Dosage: 10 MILLIGRAM, QD (ON DAY 1)
     Route: 048
     Dates: start: 20230615, end: 20230615
  2. OTEZLA [Suspect]
     Active Substance: APREMILAST
     Indication: Psoriasis
     Dosage: 10 MILLIGRAM, BID (ON DAY 2)
     Route: 048
     Dates: start: 20230616, end: 20230616
  3. OTEZLA [Suspect]
     Active Substance: APREMILAST
     Dosage: 30 MILLIGRAM (10MG IN AM AND 20MG IN PM ON DAY 3)
     Route: 048
     Dates: start: 20230617, end: 20230617
  4. OTEZLA [Suspect]
     Active Substance: APREMILAST
     Dosage: 20 MILLIGRAM, BID (ON DAY 4)
     Route: 048
     Dates: start: 20230618, end: 20230618
  5. OTEZLA [Suspect]
     Active Substance: APREMILAST
     Dosage: 50 MILLIGRAM, BID (20MG IN AM AND 30MG IN PM ON DAY 5)
     Route: 048
     Dates: start: 20230619, end: 20230619
  6. OTEZLA [Suspect]
     Active Substance: APREMILAST
     Dosage: 30 MILLIGRAM, BID
     Route: 048
     Dates: start: 20230620
  7. OTEZLA [Suspect]
     Active Substance: APREMILAST
     Dosage: 30 MILLIGRAM, BID
     Route: 048
  8. ADVIL [Concomitant]
     Active Substance: IBUPROFEN\IBUPROFEN SODIUM
     Dosage: 200 MILLIGRAM
  9. ALEVE [Concomitant]
     Active Substance: NAPROXEN SODIUM
     Dosage: 220 MILLIGRAM
  10. CYCLOBENZAPRINE [Concomitant]
     Active Substance: CYCLOBENZAPRINE
     Dosage: 10 MILLIGRAM
  11. REMICADE [Concomitant]
     Active Substance: INFLIXIMAB
     Dosage: 100 MILLIGRAM
  12. ZOVIRAX [Concomitant]
     Active Substance: ACYCLOVIR
     Dosage: UNK (0.3 PERCENT AND 5 PERCENT CREAM)
  13. CLOBETASOL [Concomitant]
     Active Substance: CLOBETASOL
     Dosage: UNK
  14. METHOTREXATE [Concomitant]
     Active Substance: METHOTREXATE
     Dosage: 2.5 MILLIGRAM
  15. ZORYVE [Concomitant]
     Active Substance: ROFLUMILAST
     Dosage: UNK

REACTIONS (3)
  - Psoriasis [Recovering/Resolving]
  - Diarrhoea [Not Recovered/Not Resolved]
  - Headache [Not Recovered/Not Resolved]

NARRATIVE: CASE EVENT DATE: 20230801
